FAERS Safety Report 7048490-2 (Version None)
Quarter: 2010Q4

REPORT INFORMATION
  Report Type: 
  Country: None (occurrence: None)
  Receive Date: 20101015
  Receipt Date: 20101015
  Transmission Date: 20110411
  Serious: Yes (Disabling)
  Sender: FDA-Public Use
  Company Number: None

PATIENT
  Sex: Female
  Weight: 50.9 kg

DRUGS (2)
  1. BONIVA [Suspect]
     Indication: NECROSIS
     Dosage: 150 MG. ONCE MONTHLY 047
     Dates: start: 19970101, end: 20070101
  2. BONIVA [Suspect]
     Indication: OSTEITIS
     Dosage: 150 MG. ONCE MONTHLY 047
     Dates: start: 19970101, end: 20070101

REACTIONS (2)
  - OSTEITIS [None]
  - OSTEONECROSIS OF JAW [None]
